FAERS Safety Report 6941026-3 (Version None)
Quarter: 2010Q3

REPORT INFORMATION
  Report Type: 
  Country: None (occurrence: None)
  Receive Date: 20100825
  Receipt Date: 20100816
  Transmission Date: 20110219
  Serious: Yes (Other)
  Sender: FDA-Public Use
  Company Number: B0670461A

PATIENT

DRUGS (3)
  1. VALTREX [Suspect]
     Indication: HERPES ZOSTER
     Dosage: 1000MG PER DAY
     Route: 048
  2. VALTREX [Suspect]
     Dosage: 3000MG PER DAY
     Route: 048
  3. VALTREX [Suspect]
     Dosage: 2000MG PER DAY
     Route: 048

REACTIONS (1)
  - ULCERATIVE KERATITIS [None]
